FAERS Safety Report 8821919 (Version 2)
Quarter: 2012Q4

REPORT INFORMATION
  Report Type: 
  Country: BR (occurrence: BR)
  Receive Date: 20121003
  Receipt Date: 20121030
  Transmission Date: 20130627
  Serious: Yes (Other)
  Sender: FDA-Public Use
  Company Number: BR-AMGEN-BRASP2008000274

PATIENT
  Sex: Female

DRUGS (1)
  1. ENBREL [Suspect]
     Indication: PRODUCT USED FOR UNKNOWN INDICATION
     Dosage: UNK
     Dates: start: 20080619

REACTIONS (17)
  - Hypothermia [Unknown]
  - Laryngeal oedema [Unknown]
  - Dysphagia [Unknown]
  - Ecchymosis [Unknown]
  - Oropharyngeal pain [Unknown]
  - Dry mouth [Unknown]
  - Sluggishness [Unknown]
  - Pain [Unknown]
  - Pain in extremity [Unknown]
  - Pallor [Unknown]
  - Thirst [Unknown]
  - Asthenia [Unknown]
  - Abdominal pain upper [Unknown]
  - Vomiting [Unknown]
  - Throat irritation [Not Recovered/Not Resolved]
  - Oropharyngeal blistering [Recovered/Resolved]
  - Blister infected [Recovered/Resolved]
